FAERS Safety Report 11918188 (Version 1)
Quarter: 2016Q1

REPORT INFORMATION
  Report Type: Spontaneous
  Country: GB (occurrence: GB)
  Receive Date: 20160114
  Receipt Date: 20160114
  Transmission Date: 20160526
  Serious: Yes (Hospitalization, Other)
  Sender: FDA-Public Use
  Company Number: GB-AMGEN-GBRSP2016003738

PATIENT
  Age: 85 Year
  Sex: Female
  Weight: 53.2 kg

DRUGS (7)
  1. METHOTREXATE [Concomitant]
     Active Substance: METHOTREXATE
     Dosage: 10 MG, WEEKLY
  2. FOLIC ACID. [Concomitant]
     Active Substance: FOLIC ACID
     Dosage: 5 MG, WEEKLY (2 DAYS AFTER METHOTREXATE)
  3. CARMELLOSE SODIUM [Concomitant]
     Active Substance: CARBOXYMETHYLCELLULOSE SODIUM
     Dosage: 0.5%, 1 TO 2 DROPS
     Route: 047
  4. CALCIUM CARBONATE W/CALCIUM PHOSPHA/00447201/ [Concomitant]
     Indication: BONE DISORDER
     Dosage: COLECALCIFEROL 400 UNIT/ CALCIUM CARBONATE 1.5G
  5. DIGOXIN. [Concomitant]
     Active Substance: DIGOXIN
     Dosage: 62.5 UG, 1X/DAY
  6. DABIGATRAN ETEXILATE [Concomitant]
     Active Substance: DABIGATRAN ETEXILATE
     Indication: CEREBROVASCULAR ACCIDENT PROPHYLAXIS
     Dosage: 110 MG, 2X/DAY
  7. ENBREL [Suspect]
     Active Substance: ETANERCEPT
     Indication: RHEUMATOID ARTHRITIS
     Dosage: 50 MG, UNK
     Route: 058
     Dates: start: 201503

REACTIONS (2)
  - Fall [Unknown]
  - Hip fracture [Recovering/Resolving]

NARRATIVE: CASE EVENT DATE: 20151024
